FAERS Safety Report 23527609 (Version 4)
Quarter: 2025Q1

REPORT INFORMATION
  Report Type: Spontaneous
  Country: US (occurrence: US)
  Receive Date: 20240215
  Receipt Date: 20250312
  Transmission Date: 20250409
  Serious: Yes (Disabling, Other)
  Sender: PFIZER
  Company Number: US-PFIZER INC-202400041268

PATIENT
  Age: 86 Year
  Sex: Male
  Weight: 75.75 kg

DRUGS (1)
  1. VYNDAMAX [Suspect]
     Active Substance: TAFAMIDIS
     Indication: Amyloidosis

REACTIONS (6)
  - Accident [Unknown]
  - Ligament sprain [Unknown]
  - Ocular neoplasm [Unknown]
  - Nasopharyngitis [Recovered/Resolved]
  - Influenza [Recovered/Resolved]
  - Malaise [Unknown]

NARRATIVE: CASE EVENT DATE: 20250201
